FAERS Safety Report 9011719 (Version 2)
Quarter: 2013Q1

REPORT INFORMATION
  Report Type: Spontaneous
  Country: US (occurrence: US)
  Receive Date: 20130114
  Receipt Date: 20130125
  Transmission Date: 20140127
  Serious: Yes (Other)
  Sender: FDA-Public Use
  Company Number: US-009507513-0909USA03203

PATIENT
  Age: 24 Month
  Sex: Female
  Weight: 14.52 kg

DRUGS (2)
  1. MONTELUKAST SODIUM [Suspect]
     Dosage: 4 MG, QD
     Route: 048
     Dates: start: 20070301, end: 20080401
  2. SINGULAIR [Concomitant]

REACTIONS (8)
  - Mental disorder [Unknown]
  - Affective disorder [Unknown]
  - Agitation [Unknown]
  - Anxiety [Unknown]
  - Depression [Unknown]
  - Insomnia [Unknown]
  - Nightmare [Unknown]
  - Self esteem decreased [Unknown]
